FAERS Safety Report 19152130 (Version 2)
Quarter: 2021Q2

REPORT INFORMATION
  Report Type: Spontaneous
  Country: US (occurrence: US)
  Receive Date: 20210419
  Receipt Date: 20210510
  Transmission Date: 20210717
  Serious: Yes (Hospitalization)
  Sender: FDA-Public Use
  Company Number: US-SA-2021SA125784

PATIENT
  Sex: Female

DRUGS (1)
  1. DUPIXENT [Suspect]
     Active Substance: DUPILUMAB
     Indication: DERMATITIS ATOPIC
     Dosage: 300 MG, QOW
     Route: 058

REACTIONS (7)
  - Hospitalisation [Unknown]
  - Nerve injury [Unknown]
  - Rash erythematous [Unknown]
  - Skin exfoliation [Unknown]
  - Rash macular [Unknown]
  - Rash [Unknown]
  - Surgery [Unknown]
